FAERS Safety Report 24135920 (Version 1)
Quarter: 2024Q3

REPORT INFORMATION
  Report Type: Other
  Country: US (occurrence: US)
  Receive Date: 20240725
  Receipt Date: 20240725
  Transmission Date: 20241017
  Serious: Yes (Hospitalization)
  Sender: APPCO PHARMA
  Company Number: US-Appco Pharma LLC-2159576

PATIENT

DRUGS (2)
  1. VENLAFAXINE [Suspect]
     Active Substance: VENLAFAXINE HYDROCHLORIDE
     Indication: COVID-19
     Route: 065
  2. PAXLOVID [Interacting]
     Active Substance: NIRMATRELVIR\RITONAVIR
     Route: 065

REACTIONS (2)
  - Drug interaction [Unknown]
  - Hyponatraemia [Recovered/Resolved]
